FAERS Safety Report 16302339 (Version 2)
Quarter: 2020Q2

REPORT INFORMATION
  Report Type: Spontaneous
  Country: US (occurrence: US)
  Receive Date: 20190513
  Receipt Date: 20200502
  Transmission Date: 20200713
  Serious: Yes (Life-Threatening, Hospitalization)
  Sender: FDA-Public Use
  Company Number: US-SUN PHARMACEUTICAL INDUSTRIES LTD-2019R1-207460

PATIENT
  Age: 63 Year
  Sex: Male

DRUGS (4)
  1. DOFETILIDE. [Suspect]
     Active Substance: DOFETILIDE
     Indication: CORONARY ARTERY DISEASE
  2. DOFETILIDE. [Suspect]
     Active Substance: DOFETILIDE
     Indication: ATRIAL FIBRILLATION
     Dosage: UNK
     Route: 065
  3. BUMEX [Concomitant]
     Active Substance: BUMETANIDE
     Indication: CORONARY ARTERY DISEASE
  4. BUMEX [Concomitant]
     Active Substance: BUMETANIDE
     Indication: ATRIAL FIBRILLATION
     Dosage: UNK
     Route: 065

REACTIONS (5)
  - Hypokalaemia [Unknown]
  - Blood creatinine increased [Unknown]
  - Toxicity to various agents [Unknown]
  - Ventricular tachycardia [Recovered/Resolved]
  - Electrocardiogram ST segment elevation [Unknown]
